FAERS Safety Report 5651083-2 (Version None)
Quarter: 2008Q1

REPORT INFORMATION
  Report Type: 
  Country: None (occurrence: None)
  Receive Date: 20080305
  Receipt Date: 20080229
  Transmission Date: 20080703
  Serious: Yes (Hospitalization)
  Sender: FDA-Public Use
  Company Number: B0511038A

PATIENT
  Age: 4 Year
  Sex: Female

DRUGS (1)
  1. AUGMENTIN '125' [Suspect]
     Indication: DRUG USE FOR UNKNOWN INDICATION
     Dosage: 550MG UNKNOWN
     Route: 048

REACTIONS (3)
  - CHILLS [None]
  - DRUG ADMINISTRATION ERROR [None]
  - PYREXIA [None]
